FAERS Safety Report 24910417 (Version 1)
Quarter: 2025Q1

REPORT INFORMATION
  Report Type: Spontaneous
  Country: CA (occurrence: CA)
  Receive Date: 20250131
  Receipt Date: 20250131
  Transmission Date: 20250408
  Serious: Yes (Life-Threatening, Hospitalization, Other)
  Sender: TEVA
  Company Number: CA-TEVA-VS-3292955

PATIENT
  Age: 53 Year
  Sex: Female

DRUGS (6)
  1. QUETIAPINE [Suspect]
     Active Substance: QUETIAPINE
     Indication: Product used for unknown indication
     Route: 048
  2. CLONAZEPAM [Suspect]
     Active Substance: CLONAZEPAM
     Indication: Product used for unknown indication
     Route: 048
  3. ALPRAZOLAM [Suspect]
     Active Substance: ALPRAZOLAM
     Indication: Product used for unknown indication
     Route: 048
  4. ZOPICLONE [Suspect]
     Active Substance: ZOPICLONE
     Indication: Product used for unknown indication
     Route: 048
  5. LORAZEPAM [Suspect]
     Active Substance: LORAZEPAM
     Indication: Suicide attempt
     Route: 048
  6. VICKS NYQUIL [Suspect]
     Active Substance: ACETAMINOPHEN\DEXTROMETHORPHAN HYDROBROMIDE\DOXYLAMINE SUCCINATE
     Indication: Product used for unknown indication
     Route: 048

REACTIONS (18)
  - Lactic acidosis [Recovered/Resolved]
  - Blood pressure decreased [Recovered/Resolved]
  - Blood creatinine increased [Recovered/Resolved]
  - Blood urea increased [Recovered/Resolved]
  - Blood lactic acid increased [Recovered/Resolved]
  - Toxicity to various agents [Recovered/Resolved]
  - Respiratory rate decreased [Recovered/Resolved]
  - Analgesic drug level increased [Recovered/Resolved]
  - Suicide attempt [Recovered/Resolved]
  - Anion gap increased [Recovered/Resolved]
  - Blood glucose increased [Recovered/Resolved]
  - Sinus tachycardia [Recovered/Resolved]
  - Osmolar gap increased [Recovered/Resolved]
  - Blood potassium decreased [Recovered/Resolved]
  - Intentional overdose [Recovered/Resolved]
  - PO2 increased [Recovered/Resolved]
  - Blood osmolarity increased [Recovered/Resolved]
  - Loss of consciousness [Recovered/Resolved]
